FAERS Safety Report 14364220 (Version 3)
Quarter: 2018Q1

REPORT INFORMATION
  Report Type: Report from Study
  Country: US (occurrence: US)
  Receive Date: 20180108
  Receipt Date: 20180327
  Transmission Date: 20180509
  Serious: Yes (Hospitalization, Other)
  Sender: FDA-Public Use
  Company Number: US-GILEAD-2018-0314072

PATIENT
  Age: 86 Year
  Sex: Female

DRUGS (1)
  1. AMBRISENTAN [Suspect]
     Active Substance: AMBRISENTAN
     Indication: PRODUCT USED FOR UNKNOWN INDICATION
     Dosage: 5 MG, UNK
     Route: 065
     Dates: start: 20101221

REACTIONS (8)
  - Chest pain [Recovered/Resolved]
  - Hypertension [Recovered/Resolved]
  - Product use issue [Unknown]
  - Malaise [Unknown]
  - Malaise [Unknown]
  - Chest pain [Recovered/Resolved]
  - Blindness [Recovered/Resolved]
  - Hypertension [Recovered/Resolved]

NARRATIVE: CASE EVENT DATE: 201711
